FAERS Safety Report 24019346 (Version 7)
Quarter: 2025Q4

REPORT INFORMATION
  Report Type: Report from Study
  Country: US (occurrence: None)
  Receive Date: 20240627
  Receipt Date: 20251014
  Transmission Date: 20260117
  Serious: Yes (Other)
  Sender: UCB
  Company Number: US-UCBSA-2024026704

PATIENT
  Age: 21 Year
  Weight: 27.211 kg

DRUGS (14)
  1. FENFLURAMINE [Suspect]
     Active Substance: FENFLURAMINE
     Indication: Lennox-Gastaut syndrome
     Dosage: 2.8 MILLILITER, 2X/DAY (BID)
  2. FENFLURAMINE [Suspect]
     Active Substance: FENFLURAMINE
     Indication: Seizure
     Dosage: 2.8 MILLILITER, 2X/DAY (BID)
  3. FENFLURAMINE [Suspect]
     Active Substance: FENFLURAMINE
     Dosage: 12.32 MILLIGRAM PER DAY
  4. Budesenide [Concomitant]
     Indication: Product used for unknown indication
     Dosage: UNK
  5. ALBUTEROL [Concomitant]
     Active Substance: ALBUTEROL
     Indication: Product used for unknown indication
     Dosage: UNK,0.83% 60 X 2.5 ML WITH PERCUSSION VEST
  6. DIAZEPAM [Concomitant]
     Active Substance: DIAZEPAM
     Indication: Dystonia
     Dosage: UNK, 0.5-1 CC
  7. DIAZEPAM [Concomitant]
     Active Substance: DIAZEPAM
     Dosage: UNK, 1/2 OF 5 MG TABS BID
  8. BACLOFEN [Concomitant]
     Active Substance: BACLOFEN
     Indication: Product used for unknown indication
     Dosage: 1 1/2 20 MG TABS TID
  9. Voltoco [Concomitant]
     Indication: Seizure
     Dosage: UNK
  10. DIVALPROEX SODIUM [Concomitant]
     Active Substance: DIVALPROEX SODIUM
     Indication: Product used for unknown indication
     Dosage: 500 MILLIGRAM, ONCE DAILY (QD) (NOON)
  11. EPIDIOLEX [Concomitant]
     Active Substance: CANNABIDIOL
     Indication: Product used for unknown indication
     Dosage: UNK, 2 CC 2X/DAY (BID)
  12. ONABOTULINUMTOXINA [Concomitant]
     Active Substance: ONABOTULINUMTOXINA
     Indication: Product used for unknown indication
     Dosage: UNK
  13. BOTOX [Concomitant]
     Active Substance: ONABOTULINUMTOXINA
     Indication: Product used for unknown indication
     Dosage: UNK
  14. Trihexaphenadyl [Concomitant]
     Indication: Product used for unknown indication
     Dosage: 2 MILLIGRAM, 3X/DAY (TID)

REACTIONS (7)
  - Brain injury [Unknown]
  - Seizure [Not Recovered/Not Resolved]
  - Left ventricular dysfunction [Not Recovered/Not Resolved]
  - Condition aggravated [Not Recovered/Not Resolved]
  - Muscle twitching [Recovered/Resolved]
  - Tongue thrust [Recovered/Resolved]
  - Foaming at mouth [Recovered/Resolved]
